FAERS Safety Report 17258471 (Version 1)
Quarter: 2019Q4

REPORT INFORMATION
  Report Type: Spontaneous
  Country: US (occurrence: US)
  Receive Date: 20191218
  Receipt Date: 20191218
  Transmission Date: 20200122
  Serious: Yes (Hospitalization)
  Sender: FDA-Public Use
  Company Number: None

PATIENT
  Sex: Male

DRUGS (1)
  1. ENBREL [Suspect]
     Active Substance: ETANERCEPT
     Indication: MYELOPATHY
     Dosage: ?          OTHER FREQUENCY:Q7 DAYS ;?
     Route: 058
     Dates: start: 20190522

REACTIONS (1)
  - Hip surgery [None]
